FAERS Safety Report 20578353 (Version 1)
Quarter: 2022Q1

REPORT INFORMATION
  Report Type: Spontaneous
  Country: US (occurrence: None)
  Receive Date: 20220310
  Receipt Date: 20220310
  Transmission Date: 20220424
  Serious: No
  Sender: FDA-Public Use
  Company Number: None

PATIENT
  Age: 54 Year
  Sex: Female
  Weight: 54 kg

DRUGS (2)
  1. MYRBETRIQ [Suspect]
     Active Substance: MIRABEGRON
     Indication: Hypertonic bladder
     Dosage: OTHER QUANTITY : 1 TABLET(S);?FREQUENCY : DAILY;?
     Route: 048
     Dates: start: 20220304, end: 20220308
  2. multi chewable gummies [Concomitant]

REACTIONS (8)
  - Presyncope [None]
  - Chest discomfort [None]
  - Dizziness [None]
  - Nausea [None]
  - Asthenia [None]
  - Throat tightness [None]
  - Decreased appetite [None]
  - Therapy cessation [None]

NARRATIVE: CASE EVENT DATE: 20220310
